FAERS Safety Report 7003069-3 (Version None)
Quarter: 2010Q3

REPORT INFORMATION
  Report Type: 
  Country: None (occurrence: None)
  Receive Date: 20100920
  Receipt Date: 20100428
  Transmission Date: 20110219
  Serious: Yes (Other)
  Sender: FDA-Public Use
  Company Number: US-ASTRAZENECA-2010SE19191

PATIENT
  Sex: Female

DRUGS (8)
  1. SEROQUEL [Suspect]
     Indication: BIPOLAR DISORDER
     Route: 048
  2. SEROQUEL [Suspect]
     Route: 048
  3. TEGRETOL [Concomitant]
  4. CARVEDILOL [Concomitant]
  5. LEXAPRO [Concomitant]
  6. LASIX [Concomitant]
  7. GABAPENTIN [Concomitant]
  8. METFORMIN [Concomitant]

REACTIONS (3)
  - CARDIAC FAILURE CONGESTIVE [None]
  - SOMNOLENCE [None]
  - WEIGHT INCREASED [None]
